FAERS Safety Report 19956528 (Version 1)
Quarter: 2021Q4

REPORT INFORMATION
  Report Type: Spontaneous
  Country: JP (occurrence: JP)
  Receive Date: 20211014
  Receipt Date: 20211014
  Transmission Date: 20220304
  Serious: Yes (Hospitalization)
  Sender: FDA-Public Use
  Company Number: JP-NBI-J202118555BIPI

PATIENT
  Age: 81 Year

DRUGS (1)
  1. DABIGATRAN ETEXILATE MESYLATE [Suspect]
     Active Substance: DABIGATRAN ETEXILATE MESYLATE
     Indication: Atrial fibrillation
     Route: 048
     Dates: end: 20210922

REACTIONS (2)
  - Intra-abdominal haemorrhage [Recovered/Resolved]
  - Abdominal cavity drainage [Recovered/Resolved]

NARRATIVE: CASE EVENT DATE: 20210922
